FAERS Safety Report 25998585 (Version 3)
Quarter: 2025Q4

REPORT INFORMATION
  Report Type: Spontaneous
  Country: EU (occurrence: EU)
  Receive Date: 20251105
  Receipt Date: 20251203
  Transmission Date: 20260118
  Serious: Yes (Hospitalization)
  Sender: CELLTRION
  Company Number: EU-002147023-NVSC2025PT162053

PATIENT

DRUGS (9)
  1. INFLIXIMAB [Suspect]
     Active Substance: INFLIXIMAB
     Indication: Product used for unknown indication
     Dosage: UNK
     Route: 065
     Dates: start: 2022, end: 2024
  2. SECUKINUMAB [Suspect]
     Active Substance: SECUKINUMAB
     Indication: Hidradenitis
     Dosage: UNK, Q2W
     Route: 065
     Dates: start: 20250113
  3. SECUKINUMAB [Suspect]
     Active Substance: SECUKINUMAB
     Dosage: UNK
     Route: 065
  4. RIFAMPIN [Suspect]
     Active Substance: RIFAMPIN
     Indication: Product used for unknown indication
     Dosage: 300 MG, BID (12 WEEKS)
     Route: 065
     Dates: start: 2018
  5. ADALIMUMAB [Suspect]
     Active Substance: ADALIMUMAB
     Indication: Product used for unknown indication
     Dosage: UNK
     Route: 065
     Dates: start: 2019, end: 2021
  6. CLINDAMYCIN HYDROCHLORIDE [Concomitant]
     Active Substance: CLINDAMYCIN HYDROCHLORIDE
     Indication: Product used for unknown indication
     Dosage: 300 MG, Q12H (EVERY 12 HOURS)
     Route: 065
     Dates: start: 202503
  7. RESORCINOL [Concomitant]
     Active Substance: RESORCINOL
     Indication: Product used for unknown indication
     Dosage: 15 %
     Route: 065
  8. PREDNISOLONE [Concomitant]
     Active Substance: PREDNISOLONE
     Indication: Product used for unknown indication
     Dosage: 100 MG, QD (FOR 12 WEEKS)
     Route: 065
  9. DOXYCYCLINE [Concomitant]
     Active Substance: DOXYCYCLINE
     Indication: Product used for unknown indication
     Dosage: 100 MG, BID (FOR 12 WEEKS)
     Route: 065
     Dates: start: 2018

REACTIONS (8)
  - Skin hypertrophy [Unknown]
  - Hidradenitis [Unknown]
  - Dermatitis [Unknown]
  - Iron deficiency anaemia [Unknown]
  - Lymphadenopathy [Unknown]
  - Eczema [Unknown]
  - Therapy partial responder [Unknown]
  - Treatment failure [Unknown]
